FAERS Safety Report 13320488 (Version 1)
Quarter: 2017Q1

REPORT INFORMATION
  Report Type: Report from Study
  Country: CN (occurrence: CN)
  Receive Date: 20170309
  Receipt Date: 20170309
  Transmission Date: 20170428
  Serious: Yes (Other)
  Sender: FDA-Public Use
  Company Number: CN-ROCHE-1901716

PATIENT

DRUGS (2)
  1. PREDNISONE. [Suspect]
     Active Substance: PREDNISONE
     Indication: IGA NEPHROPATHY
     Dosage: DAILY 0.4 TO 0.6 MG/KG/D TAKEN EVERY MORNING FOR 2 MONTHS AND THEN TAPERED BY 20% EACH MONTH FOR THE
     Route: 048
  2. MYCOPHENOLATE MOFETIL. [Suspect]
     Active Substance: MYCOPHENOLATE MOFETIL
     Indication: IGA NEPHROPATHY
     Route: 048

REACTIONS (3)
  - Acute kidney injury [Unknown]
  - Pneumonia [Unknown]
  - Optic neuritis [Unknown]
